FAERS Safety Report 25335727 (Version 4)
Quarter: 2025Q3

REPORT INFORMATION
  Report Type: Spontaneous
  Country: US (occurrence: US)
  Receive Date: 20250520
  Receipt Date: 20250918
  Transmission Date: 20251020
  Serious: No
  Sender: TRAVERE THERAPEUTICS
  Company Number: US-TRAVERE-2025TVT00740

PATIENT
  Age: 64 Year
  Sex: Female

DRUGS (11)
  1. FILSPARI [Suspect]
     Active Substance: SPARSENTAN
     Indication: IgA nephropathy
     Dosage: LOT NUMBER: 1976071, EXPIRY DATE: 31-MAY-2026
     Route: 048
     Dates: start: 20250508
  2. PREGABALIN [Concomitant]
     Active Substance: PREGABALIN
  3. LEVOTHYROXlNE SODIUM [Concomitant]
  4. ALLOPURINOL [Concomitant]
     Active Substance: ALLOPURINOL
  5. SPIRONOLACTONE [Concomitant]
     Active Substance: SPIRONOLACTONE
  6. MYRBETRIQ [Concomitant]
     Active Substance: MIRABEGRON
  7. SIMVASTATIN [Concomitant]
     Active Substance: SIMVASTATIN
  8. FAMOTIDINE [Concomitant]
     Active Substance: FAMOTIDINE
  9. CRANBERRY [Concomitant]
     Active Substance: CRANBERRY
  10. PREDNISONE [Concomitant]
     Active Substance: PREDNISONE
  11. CYCLOBENZAPRINE HYDROCHLORIDE [Concomitant]
     Active Substance: CYCLOBENZAPRINE HYDROCHLORIDE

REACTIONS (8)
  - Muscle spasms [Unknown]
  - Blood potassium increased [Recovering/Resolving]
  - Limb discomfort [Unknown]
  - Back pain [Unknown]
  - Gait disturbance [Unknown]
  - Feeling abnormal [Unknown]
  - Fatigue [Unknown]
  - Hypotension [Recovering/Resolving]

NARRATIVE: CASE EVENT DATE: 20250515
